FAERS Safety Report 6998749-X (Version None)
Quarter: 2010Q3

REPORT INFORMATION
  Report Type: 
  Country: None (occurrence: None)
  Receive Date: 20100920
  Receipt Date: 20100209
  Transmission Date: 20110219
  Serious: No
  Sender: FDA-Public Use
  Company Number: US-ASTRAZENECA-2010SE06119

PATIENT
  Age: 58 Year
  Sex: Female
  Weight: 91.2 kg

DRUGS (5)
  1. SEROQUEL [Suspect]
     Indication: SLEEP DISORDER
     Route: 048
     Dates: start: 20100201, end: 20100202
  2. SEROQUEL [Suspect]
     Route: 048
     Dates: start: 20100202
  3. CRESTOR [Concomitant]
  4. PLAVIX [Concomitant]
  5. B/P MEDS [Concomitant]

REACTIONS (3)
  - DRY MOUTH [None]
  - DYSGEUSIA [None]
  - GLOSSODYNIA [None]
